FAERS Safety Report 5453707-1 (Version None)
Quarter: 2007Q3

REPORT INFORMATION
  Report Type: 
  Country: None (occurrence: None)
  Receive Date: 20070917
  Receipt Date: 20070905
  Transmission Date: 20080115
  Serious: Yes (Other)
  Sender: FDA-Public Use
  Company Number: US-AVENTIS-200716412US

PATIENT
  Sex: Female

DRUGS (3)
  1. LANTUS [Suspect]
     Dosage: DOSE: 20 UNITS AT LUNCH TIME AND 5 UNITS AT MIDNIGHT
     Route: 051
     Dates: start: 20060701
  2. NOVOLOG [Concomitant]
     Dosage: DOSE: UNK
  3. PRENATAL VITAMINS                  /01549301/ [Concomitant]
     Dosage: DOSE: UNK

REACTIONS (1)
  - ABORTION SPONTANEOUS [None]
